FAERS Safety Report 4400956-7 (Version None)
Quarter: 2004Q3

REPORT INFORMATION
  Report Type: 
  Country: None (occurrence: None)
  Receive Date: 20040907
  Receipt Date: 20030825
  Transmission Date: 20050211
  Serious: No
  Sender: FDA-Public Use
  Company Number: US-BRISTOL-MYERS SQUIBB COMPANY-12365847

PATIENT
  Age: 82 Year
  Sex: Female
  Weight: 67 kg

DRUGS (10)
  1. COUMADIN [Suspect]
     Indication: CEREBROVASCULAR ACCIDENT
     Dosage: DOSE VALUE:  2 MG SUN,MON,WED,FRI, ALTERNATING WITH 2.5 MG TUES,THUR, AND SAT.
     Route: 048
     Dates: start: 20000620
  2. TYLENOL [Suspect]
     Indication: ARTHRALGIA
     Dosage: DOSE VALUE:  4 TO 6 DOSAGE FORM.
     Dates: start: 20030601
  3. ATENOLOL [Concomitant]
     Dates: start: 20020401
  4. AVAPRO [Concomitant]
     Dates: start: 20020401
  5. ZOCOR [Concomitant]
     Dates: start: 20030501
  6. BUMEX [Concomitant]
     Indication: FLUID RETENTION
     Dosage: DOSE INCREASED TO 2 TABLETS IF NEEDED.
     Dates: start: 19910101
  7. POTASSIUM [Concomitant]
     Dosage: DOSE INCREASED TO 2 IF NEEDED.
     Dates: start: 19910101
  8. PREMARIN [Concomitant]
  9. TUMS [Concomitant]
     Dosage: DURATION OF THERAPY:  SEVERAL YEARS
  10. MIACALCIN [Concomitant]
     Route: 045

REACTIONS (2)
  - INTERNATIONAL NORMALISED RATIO INCREASED [None]
  - MUSCULOSKELETAL DISCOMFORT [None]
